FAERS Safety Report 9453508 (Version 2)
Quarter: 2013Q3

REPORT INFORMATION
  Report Type: Spontaneous
  Country: GB (occurrence: GB)
  Receive Date: 20130812
  Receipt Date: 20130820
  Transmission Date: 20140515
  Serious: No
  Sender: FDA-Public Use
  Company Number: GB-JNJFOC-20130803342

PATIENT
  Sex: Male

DRUGS (1)
  1. DUROGESIC DTRANS [Suspect]
     Indication: PAIN
     Route: 062

REACTIONS (4)
  - Feeling abnormal [Unknown]
  - Wrong technique in drug usage process [Unknown]
  - Breakthrough pain [Unknown]
  - Therapeutic response decreased [Unknown]
